FAERS Safety Report 9059254 (Version 1)
Quarter: 2013Q1

REPORT INFORMATION
  Report Type: Spontaneous
  Country: FR (occurrence: FR)
  Receive Date: 20130211
  Receipt Date: 20130211
  Transmission Date: 20140127
  Serious: Yes (Hospitalization)
  Sender: FDA-Public Use
  Company Number: FR-GILEAD-2013-0069617

PATIENT
  Age: 47 None
  Sex: Male

DRUGS (3)
  1. TRUVADA [Suspect]
     Indication: HIV INFECTION
     Dosage: UNK
     Route: 048
     Dates: end: 20121113
  2. REYATAZ [Suspect]
     Indication: HIV INFECTION
     Route: 048
  3. IMODIUM [Concomitant]
     Indication: DIARRHOEA
     Route: 048

REACTIONS (1)
  - Haemolytic anaemia [Unknown]
